FAERS Safety Report 7127164 (Version 3)
Quarter: 2012Q4

REPORT INFORMATION
  Report Type: 
  Country: US (occurrence: US)
  Receive Date: 20090924
  Receipt Date: 20121120
  Transmission Date: 20130627
  Serious: No
  Sender: FDA-Public Use
  Company Number: US-ASTRAZENECA-2008UW21844

PATIENT
  Age: 50 Year
  Sex: Female
  Weight: 97.1 kg

DRUGS (21)
  1. NEXIUM [Suspect]
     Route: 048
  2. SEROQUEL [Suspect]
     Indication: MOOD SWINGS
     Dosage: MORE THAN 800 MG
     Route: 048
  3. SEROQUEL [Suspect]
     Indication: THINKING ABNORMAL
     Dosage: MORE THAN 800 MG
     Route: 048
  4. SEROQUEL [Suspect]
     Indication: BIPOLAR DISORDER
     Dosage: MORE THAN 800 MG
     Route: 048
  5. SEROQUEL [Suspect]
     Indication: MOOD SWINGS
     Route: 048
     Dates: start: 2002, end: 2010
  6. SEROQUEL [Suspect]
     Indication: THINKING ABNORMAL
     Route: 048
     Dates: start: 2002, end: 2010
  7. SEROQUEL [Suspect]
     Indication: BIPOLAR DISORDER
     Route: 048
     Dates: start: 2002, end: 2010
  8. CRESTOR [Suspect]
     Route: 048
  9. CLONOZIPAN [Concomitant]
  10. LAMICTAL [Concomitant]
  11. GEODON [Concomitant]
     Dates: start: 200809
  12. LOVOXAL [Concomitant]
  13. LOPID [Concomitant]
  14. LIPITOR [Concomitant]
  15. VALTREX [Concomitant]
  16. XALATAN [Concomitant]
  17. CITRUCEL [Concomitant]
  18. VITAMIN C [Concomitant]
  19. CELEXA [Concomitant]
     Dates: end: 20080919
  20. KLONOPIN [Concomitant]
  21. THYROID SUPPLEMENT [Concomitant]

REACTIONS (13)
  - Aphasia [Unknown]
  - Dysgraphia [Unknown]
  - Chest pain [Unknown]
  - Paranoia [Unknown]
  - Anxiety [Unknown]
  - Weight decreased [Unknown]
  - Hypoaesthesia [Unknown]
  - Thinking abnormal [Unknown]
  - Sleep apnoea syndrome [Unknown]
  - Weight increased [Unknown]
  - Somnolence [Unknown]
  - Memory impairment [Unknown]
  - Drug ineffective [Unknown]
